FAERS Safety Report 4562527-1 (Version None)
Quarter: 2005Q1

REPORT INFORMATION
  Report Type: 
  Country: None (occurrence: None)
  Receive Date: 20050124
  Receipt Date: 20050112
  Transmission Date: 20050727
  Serious: Yes (Death, Hospitalization)
  Sender: FDA-Public Use
  Company Number: 200416160BCC

PATIENT
  Age: 66 Year
  Sex: Male
  Weight: 95.2554 kg

DRUGS (7)
  1. ALEVE [Suspect]
     Indication: HEADACHE
     Dosage: 220 MG, ONCE, ORAL
     Route: 048
     Dates: start: 20000403
  2. ALEVE [Suspect]
     Indication: SINUS HEADACHE
     Dosage: 220 MG, ONCE, ORAL
     Route: 048
     Dates: start: 20000403
  3. DISALCID [Concomitant]
  4. ENBREL [Concomitant]
  5. PREDNISONE [Concomitant]
  6. PROPOXYPHENE NASPYLATE W/ACETAEMINOPHENE [Concomitant]
  7. METOPROLOL [Concomitant]

REACTIONS (10)
  - BRAIN DAMAGE [None]
  - COMA [None]
  - CONVULSION [None]
  - DYSPNOEA [None]
  - FATIGUE [None]
  - FEELING ABNORMAL [None]
  - HEADACHE [None]
  - HYPOXIA [None]
  - MALAISE [None]
  - MYOCARDIAL INFARCTION [None]
